FAERS Safety Report 9404793 (Version 1)
Quarter: 2013Q3

REPORT INFORMATION
  Report Type: Spontaneous
  Country: US (occurrence: US)
  Receive Date: 20130717
  Receipt Date: 20130717
  Transmission Date: 20140515
  Serious: Yes (Other)
  Sender: FDA-Public Use
  Company Number: US-BAYER-2013-086421

PATIENT
  Age: 34 Year
  Sex: Female
  Weight: 70.3 kg

DRUGS (7)
  1. YAZ [Suspect]
     Dosage: UNK
     Dates: start: 20090520, end: 20090521
  2. YAZ [Suspect]
     Dosage: UNK
     Dates: start: 20091216
  3. GIANVI [Suspect]
     Dosage: UNK
     Dates: start: 20110630
  4. GIANVI [Suspect]
     Dosage: UNK
     Dates: start: 20110504, end: 20111217
  5. LEVOFLOXACIN [Concomitant]
     Dosage: 500 MG, UNK
     Route: 048
     Dates: start: 20111129
  6. CHLORPHENIRAMINE W/HYDROCODONE [Concomitant]
     Dosage: UNK
     Route: 048
     Dates: start: 20111222
  7. AZITHROMYCIN [Concomitant]
     Dosage: 250 MG, UNK
     Route: 048
     Dates: start: 20111222

REACTIONS (1)
  - Deep vein thrombosis [Recovered/Resolved]
